FAERS Safety Report 8300756-1 (Version None)
Quarter: 2012Q2

REPORT INFORMATION
  Report Type: 
  Country: None (occurrence: None)
  Receive Date: 20120420
  Receipt Date: 20120417
  Transmission Date: 20120825
  Serious: Yes (Hospitalization, Other)
  Sender: FDA-Public Use
  Company Number: PHEH2006US07280

PATIENT
  Sex: Female
  Weight: 104.31 kg

DRUGS (50)
  1. ARANESP [Concomitant]
  2. FLAGYL [Concomitant]
  3. ADRIAMYCIN PFS [Concomitant]
  4. TESSALON [Concomitant]
  5. LYRICA [Concomitant]
  6. GLUCAGON [Concomitant]
  7. POTASSIUM CHLORIDE [Concomitant]
  8. TRIAMTERENE AND HYDROCHLOROTHIAZIDE [Concomitant]
  9. VINCRISTINE [Concomitant]
  10. COMBIVENT [Concomitant]
  11. AMOXICILLIN [Concomitant]
  12. ADVAIR DISKUS 100/50 [Concomitant]
  13. AREDIA [Suspect]
     Indication: MULTIPLE MYELOMA
     Dosage: 190 MG, QMO
     Route: 042
     Dates: start: 20020101, end: 20020201
  14. FAMOTIDINE [Concomitant]
  15. TRAMADOL HCL [Concomitant]
  16. SYNTHROID [Concomitant]
  17. CIPROFLOXACIN [Concomitant]
  18. DEXAMETHASONE [Concomitant]
  19. AVELOX [Concomitant]
  20. ROBITUSSIN DM                           /USA/ [Concomitant]
  21. DARVOCET-N 50 [Concomitant]
  22. NEOSPORIN [Concomitant]
  23. PRILOSEC [Concomitant]
  24. OMEPRAZOLE [Concomitant]
  25. ONDANSETRON [Concomitant]
  26. CLONIDINE [Concomitant]
  27. BEXTRA [Concomitant]
  28. ALTACE [Concomitant]
  29. DOXEPIN HCL [Concomitant]
  30. VASOTEC [Concomitant]
  31. TYLENOL (CAPLET) [Concomitant]
  32. HYDROMORPHONE HCL [Concomitant]
  33. VIOXX [Concomitant]
  34. THYROID TAB [Concomitant]
     Dosage: 180 MG, QD
  35. LISINOPRIL [Concomitant]
  36. NEURONTIN [Concomitant]
  37. CLARINEX /USA/ [Concomitant]
  38. COUMADIN [Concomitant]
  39. MIRTAZAPINE [Concomitant]
  40. LECITHIN [Concomitant]
  41. MAGNESIUM SULFATE [Concomitant]
  42. VELCADE [Concomitant]
  43. REMERON [Concomitant]
  44. VITAMIN E [Concomitant]
  45. ZOMETA [Suspect]
     Dosage: 4 MG, QMO
     Route: 042
     Dates: start: 20020301, end: 20020101
  46. MELOXICAM [Concomitant]
  47. LEVAQUIN [Concomitant]
  48. PHENAZOPYRIDINE HCL TAB [Concomitant]
  49. AMBIEN [Concomitant]
  50. VIBRAMYCIN [Concomitant]

REACTIONS (70)
  - ANAEMIA OF CHRONIC DISEASE [None]
  - INTERMITTENT CLAUDICATION [None]
  - TOOTHACHE [None]
  - INFECTION [None]
  - HYDRONEPHROSIS [None]
  - SPINAL COLUMN STENOSIS [None]
  - SCIATICA [None]
  - GENERAL PHYSICAL HEALTH DETERIORATION [None]
  - GASTRITIS [None]
  - HYPOMAGNESAEMIA [None]
  - HAEMORRHOIDS [None]
  - SCOLIOSIS [None]
  - MUSCULOSKELETAL PAIN [None]
  - COUGH [None]
  - LOOSE TOOTH [None]
  - CATARACT [None]
  - HIATUS HERNIA [None]
  - ORAL INFECTION [None]
  - DECREASED INTEREST [None]
  - BACK PAIN [None]
  - ARTHROPATHY [None]
  - HYPOAESTHESIA [None]
  - OSTEOLYSIS [None]
  - DIARRHOEA [None]
  - DEHYDRATION [None]
  - ELECTROLYTE IMBALANCE [None]
  - CHRONIC OBSTRUCTIVE PULMONARY DISEASE [None]
  - DYSPHAGIA [None]
  - GINGIVITIS [None]
  - ATELECTASIS [None]
  - SPINAL OSTEOARTHRITIS [None]
  - VOMITING [None]
  - PAIN IN EXTREMITY [None]
  - INTERVERTEBRAL DISC PROTRUSION [None]
  - RENAL CYST [None]
  - TENDONITIS [None]
  - PATHOLOGICAL FRACTURE [None]
  - SOFT TISSUE DISORDER [None]
  - PUBIS FRACTURE [None]
  - HYPOTENSION [None]
  - ASTHMA [None]
  - GINGIVAL BLEEDING [None]
  - HYPOXIA [None]
  - EXOSTOSIS [None]
  - FATIGUE [None]
  - URINARY TRACT INFECTION [None]
  - BONE LESION [None]
  - INTERVERTEBRAL DISC DEGENERATION [None]
  - VISION BLURRED [None]
  - PULMONARY EMBOLISM [None]
  - OSTEONECROSIS OF JAW [None]
  - EXPOSED BONE IN JAW [None]
  - TENDERNESS [None]
  - PAIN [None]
  - ANXIETY [None]
  - SENSORY LOSS [None]
  - SWELLING [None]
  - RENAL FAILURE [None]
  - HYPONATRAEMIA [None]
  - ARTHRALGIA [None]
  - PLEURAL EFFUSION [None]
  - DENTAL CARIES [None]
  - NAUSEA [None]
  - ABDOMINAL PAIN [None]
  - RENAL MASS [None]
  - DYSPNOEA [None]
  - HAEMANGIOMA [None]
  - ROTATOR CUFF SYNDROME [None]
  - BURSITIS [None]
  - DYSGEUSIA [None]
